FAERS Safety Report 8245103 (Version 7)
Quarter: 2013Q3

REPORT INFORMATION
  Report Type: Spontaneous
  Country: US (occurrence: US)
  Receive Date: 20111115
  Receipt Date: 20130927
  Transmission Date: 20140515
  Serious: Yes (Hospitalization, Other)
  Sender: FDA-Public Use
  Company Number: US-ROCHE-1012811

PATIENT
  Sex: Male
  Weight: 77.18 kg

DRUGS (2)
  1. ACCUTANE [Suspect]
     Indication: ROSACEA
     Route: 065
     Dates: start: 1980
  2. ACCUTANE [Suspect]
     Indication: ACNE
     Route: 065
     Dates: start: 1985

REACTIONS (13)
  - Crohn^s disease [Unknown]
  - Irritable bowel syndrome [Unknown]
  - Inflammatory bowel disease [Unknown]
  - Depression [Unknown]
  - Injury [Unknown]
  - Suicidal ideation [Unknown]
  - Large intestine polyp [Unknown]
  - Deep vein thrombosis [Unknown]
  - Blood triglycerides increased [Unknown]
  - Blood cholesterol increased [Unknown]
  - Back pain [Unknown]
  - Intervertebral disc degeneration [Unknown]
  - Sleep apnoea syndrome [Unknown]
